FAERS Safety Report 7492799-5 (Version None)
Quarter: 2011Q2

REPORT INFORMATION
  Report Type: 
  Country: None (occurrence: None)
  Receive Date: 20110519
  Receipt Date: 20110516
  Transmission Date: 20111010
  Serious: Yes (Hospitalization)
  Sender: FDA-Public Use
  Company Number: US-AMGEN-USASP2011025454

PATIENT
  Age: 12 Year
  Sex: Male

DRUGS (14)
  1. PRILOSEC [Concomitant]
  2. MICAFUNGIN [Concomitant]
  3. NPLATE [Suspect]
     Indication: IDIOPATHIC THROMBOCYTOPENIC PURPURA
     Dosage: 485 A?G, QWK
     Dates: start: 20110201
  4. PREDNISONE [Concomitant]
  5. LOVAZA [Concomitant]
  6. PERMANGANATE POTASSIUM [Concomitant]
  7. PENICILLIN [Concomitant]
  8. MULTIVITAMIN                       /00097801/ [Concomitant]
  9. CHOLECALCIFEROL [Concomitant]
  10. CELLCEPT                           /01275102/ [Concomitant]
  11. MAGNESIUM                          /00430401/ [Concomitant]
  12. EYE DROPS [Concomitant]
  13. ACYCLOVIR [Concomitant]
  14. CALCIUM + VITAMIN D [Concomitant]

REACTIONS (2)
  - DIARRHOEA [None]
  - PYREXIA [None]
